FAERS Safety Report 15348495 (Version 1)
Quarter: 2018Q3

REPORT INFORMATION
  Report Type: Spontaneous
  Country: JP (occurrence: JP)
  Receive Date: 20180904
  Receipt Date: 20180904
  Transmission Date: 20181010
  Serious: Yes (Life-Threatening, Other)
  Sender: FDA-Public Use
  Company Number: JP-OTSUKA-2018_028866

PATIENT
  Age: 82 Year
  Sex: Female

DRUGS (3)
  1. SAMSCA [Suspect]
     Active Substance: TOLVAPTAN
     Indication: CARDIAC FAILURE
  2. SAMSCA [Suspect]
     Active Substance: TOLVAPTAN
     Indication: FLUID IMBALANCE
  3. SAMSCA [Suspect]
     Active Substance: TOLVAPTAN
     Indication: PLEURAL EFFUSION
     Dosage: 7.5 MG, QD
     Route: 048
     Dates: start: 20180816, end: 20180816

REACTIONS (3)
  - Atrioventricular block [Unknown]
  - Shock [Unknown]
  - Hepatic function abnormal [Recovering/Resolving]

NARRATIVE: CASE EVENT DATE: 20180816
